FAERS Safety Report 9958421 (Version 2)
Quarter: 2014Q1

REPORT INFORMATION
  Report Type: Spontaneous
  Country: BR (occurrence: BR)
  Receive Date: 20140305
  Receipt Date: 20140305
  Transmission Date: 20141002
  Serious: Yes (Other)
  Sender: FDA-Public Use
  Company Number: BR-AMGEN-BRASP2013041027

PATIENT
  Age: 56 Year
  Sex: Female
  Weight: 72 kg

DRUGS (4)
  1. ENBREL [Suspect]
     Indication: PSORIASIS
     Dosage: 50 MG, ONCE WEEKLY
     Route: 058
     Dates: start: 201208
  2. VERAPAMIL [Concomitant]
     Indication: ARRHYTHMIA
     Dosage: UNK
  3. VERAPAMIL [Concomitant]
     Indication: CARDIAC DISORDER
  4. NEOSALDINA                         /00631701/ [Concomitant]
     Indication: MIGRAINE
     Dosage: UNK

REACTIONS (5)
  - Breast mass [Unknown]
  - Alopecia [Unknown]
  - Injection site mass [Recovered/Resolved]
  - Injection site pain [Recovered/Resolved]
  - Injection site pruritus [Recovered/Resolved]
